FAERS Safety Report 6239940-X (Version None)
Quarter: 2009Q2

REPORT INFORMATION
  Report Type: 
  Country: None (occurrence: None)
  Receive Date: 20090623
  Receipt Date: 20090610
  Transmission Date: 20091009
  Serious: Yes (Other)
  Sender: FDA-Public Use
  Company Number: CH-BAYER-200922524GPV

PATIENT
  Age: 22 Year
  Sex: Female
  Weight: 43 kg

DRUGS (2)
  1. YASMIN [Suspect]
     Indication: OSTEOPOROSIS
     Route: 048
     Dates: start: 20061201, end: 20070501
  2. CALCIUM/VITAMIN D3 [Concomitant]
     Indication: OSTEOPOROSIS

REACTIONS (5)
  - MIGRAINE [None]
  - MUSCLE SPASMS [None]
  - PANIC REACTION [None]
  - VARICOSE VEIN [None]
  - WEIGHT INCREASED [None]
